FAERS Safety Report 24344785 (Version 1)
Quarter: 2024Q3

REPORT INFORMATION
  Report Type: Spontaneous
  Country: US (occurrence: US)
  Receive Date: 20240920
  Receipt Date: 20240920
  Transmission Date: 20241017
  Serious: No
  Sender: PFIZER
  Company Number: US-PFIZER INC-2020455761

PATIENT
  Age: 62 Year
  Sex: Female

DRUGS (5)
  1. IBRANCE [Suspect]
     Active Substance: PALBOCICLIB
     Indication: Breast cancer female
     Dosage: 125 MG, CYCLIC (1 DAILY X21 DAYS THEN OFF 7 DAYS AND REPEAT)
     Route: 048
  2. IBRANCE [Suspect]
     Active Substance: PALBOCICLIB
     Dosage: 100 MG, CYCLIC ( 21 DAYS AND 7 DAYS OFF)
     Route: 048
  3. IBRANCE [Suspect]
     Active Substance: PALBOCICLIB
     Dosage: 75 MG, CYCLIC (TAKE 1 TAB DAILY DAYS 1-21, OFF FOR 7 EVERY 28 DAY CYCLE)
     Route: 048
  4. FULVESTRANT [Concomitant]
     Active Substance: FULVESTRANT
     Dosage: UNK (500)
     Route: 030
  5. LETROZOLE [Concomitant]
     Active Substance: LETROZOLE
     Dosage: UNK UNK, 1X/DAY (2.5 ONCE DAILY)
     Route: 048

REACTIONS (1)
  - Confusional state [Unknown]
